FAERS Safety Report 7435733-6 (Version None)
Quarter: 2011Q2

REPORT INFORMATION
  Report Type: 
  Country: None (occurrence: None)
  Receive Date: 20110425
  Receipt Date: 20110414
  Transmission Date: 20111010
  Serious: Yes (Hospitalization, Other)
  Sender: FDA-Public Use
  Company Number: US-ELI_LILLY_AND_COMPANY-US201008002248

PATIENT
  Sex: Female
  Weight: 55.329 kg

DRUGS (25)
  1. LOVASTATIN [Concomitant]
     Dosage: 1 D/F, EACH EVENING
  2. CALCIUM [Concomitant]
  3. SYMBICORT [Concomitant]
     Dosage: 80/4.5, 2 PUFFS TWICE A DAYUNK, BID
     Route: 065
  4. FORTEO [Suspect]
     Indication: OSTEOPOROSIS
     Dosage: 20 UG, DAILY (1/D)
     Dates: start: 20100506
  5. METOPROLOL SUCCINATE [Concomitant]
     Dosage: 12.5 MG, DAILY (1/D)
  6. ALBUTEROL [Concomitant]
  7. SPIRIVA [Concomitant]
     Dosage: 1 D/F, DAILY (1/D)
  8. PROAIR HFA [Concomitant]
     Dosage: 1 D/F, 2/D
     Route: 055
  9. CLONAZEPAM [Concomitant]
     Dosage: 10 MG, EACH EVENING
  10. ASCORBIC ACID [Concomitant]
     Dosage: 500 MG, QD
     Route: 065
  11. MULTI-VITAMIN [Concomitant]
     Dosage: UNK, QD
  12. VITAMIN B3 [Concomitant]
  13. MELATONIN [Concomitant]
     Indication: SLEEP DISORDER
     Dosage: 5 MG, EACH EVENING
  14. AUGMENTIN '125' [Concomitant]
     Dosage: 875/125 MG, BID FOR 7 DAYS
  15. FOLIC ACID [Concomitant]
     Dosage: UNK, QD
     Route: 065
  16. BENICAR HCT [Concomitant]
     Dosage: 40/12.5MG, QD
  17. TYLENOL (CAPLET) [Concomitant]
     Dosage: 500 MG, AS NEEDED
  18. CALCIUM +VIT D [Concomitant]
     Route: 065
  19. FORTEO [Suspect]
     Dosage: 20 UG, DAILY (1/D)
  20. CLONAZEPAM [Concomitant]
     Indication: MUSCLE SPASMS
     Dosage: 0.5 MG, EACH EVENING
  21. VITAMIN B-12 [Concomitant]
     Dosage: 500 UG, QD
  22. FORTEO [Suspect]
     Dosage: 20 UG, DAILY (1/D)
  23. PRILOSEC [Concomitant]
     Dosage: 1 D/F, DAILY (1/D)
  24. METRONIDAZOLE [Concomitant]
     Dosage: UNK UNK, BID
     Route: 061
  25. CALCIUM W/MAGNESIUM/ZINC [Concomitant]

REACTIONS (18)
  - VISUAL IMPAIRMENT [None]
  - CHEST PAIN [None]
  - BRONCHITIS [None]
  - DEEP VEIN THROMBOSIS [None]
  - PRODUCTIVE COUGH [None]
  - MYOCARDIAL INFARCTION [None]
  - CHILLS [None]
  - PNEUMONIA [None]
  - VISION BLURRED [None]
  - INFLUENZA LIKE ILLNESS [None]
  - NAUSEA [None]
  - PULMONARY FIBROSIS [None]
  - BLOOD TEST ABNORMAL [None]
  - HYPOAESTHESIA [None]
  - INFECTION [None]
  - INFLUENZA [None]
  - ALOPECIA [None]
  - SPUTUM DISCOLOURED [None]
